FAERS Safety Report 7550774-6 (Version None)
Quarter: 2011Q2

REPORT INFORMATION
  Report Type: 
  Country: None (occurrence: None)
  Receive Date: 20110616
  Receipt Date: 20110601
  Transmission Date: 20111010
  Serious: Yes (Other)
  Sender: FDA-Public Use
  Company Number: CA-JNJFOC-20110602024

PATIENT
  Sex: Male

DRUGS (9)
  1. VITAMIN B-12 [Concomitant]
     Dosage: 1.0MG/ML
     Route: 030
  2. PREVACID [Concomitant]
     Route: 048
  3. SLOW FE [Concomitant]
     Route: 048
  4. VITAMIN E (TOCOPHERYL ACETATE) [Concomitant]
     Route: 048
  5. FOSAMAX [Concomitant]
     Route: 048
  6. INFLIXIMAB [Suspect]
     Indication: CROHN'S DISEASE
     Route: 042
     Dates: start: 20080201
  7. ASPIRIN [Concomitant]
     Route: 048
  8. IMURAN [Concomitant]
     Route: 048
  9. CALCIUM CARBONATE [Concomitant]
     Route: 048

REACTIONS (1)
  - GOUT [None]
